FAERS Safety Report 10280166 (Version 1)
Quarter: 2014Q3

REPORT INFORMATION
  Report Type: Spontaneous
  Country: IT (occurrence: IT)
  Receive Date: 20140707
  Receipt Date: 20140707
  Transmission Date: 20150326
  Serious: Yes (Hospitalization)
  Sender: FDA-Public Use
  Company Number: IT-PFIZER INC-2014184422

PATIENT
  Age: 44 Year
  Sex: Female

DRUGS (3)
  1. FLURAZEPAM HYDROCHLORIDE. [Suspect]
     Active Substance: FLURAZEPAM HYDROCHLORIDE
     Dosage: 360 MG, TOTAL
     Route: 048
     Dates: start: 20140326, end: 20140326
  2. FELDENE [Suspect]
     Active Substance: PIROXICAM
     Dosage: 40 MG, TOTAL
     Route: 048
     Dates: start: 20140326, end: 20140326
  3. ACECLOFENAC [Suspect]
     Active Substance: ACECLOFENAC
     Dosage: 2500 MG, TOTAL
     Route: 048
     Dates: start: 20140326, end: 20140326

REACTIONS (2)
  - Abdominal pain upper [Unknown]
  - Drug abuse [Unknown]

NARRATIVE: CASE EVENT DATE: 20140327
